FAERS Safety Report 7653402-4 (Version None)
Quarter: 2011Q3

REPORT INFORMATION
  Report Type: 
  Country: None (occurrence: None)
  Receive Date: 20110803
  Receipt Date: 20110728
  Transmission Date: 20111222
  Serious: Yes (Other)
  Sender: FDA-Public Use
  Company Number: US-PFIZER INC-2011172890

PATIENT
  Sex: Male

DRUGS (6)
  1. NEURONTIN [Suspect]
     Indication: PAIN
     Dosage: 900MG
  2. LYRICA [Suspect]
     Indication: FIBROMYALGIA
     Dosage: 100 MG, 2X/DAY
     Route: 048
     Dates: start: 20100108
  3. LYRICA [Suspect]
     Indication: ABDOMINAL PAIN UPPER
  4. NEURONTIN [Suspect]
     Indication: FIBROMYALGIA
     Dosage: 300MG
     Route: 048
     Dates: start: 20110624
  5. LYRICA [Suspect]
     Indication: PAIN
  6. NEURONTIN [Suspect]
     Indication: ABDOMINAL PAIN UPPER

REACTIONS (3)
  - EYE PAIN [None]
  - INTRAOCULAR PRESSURE INCREASED [None]
  - CATARACT [None]
